FAERS Safety Report 4673247-7 (Version None)
Quarter: 2005Q2

REPORT INFORMATION
  Report Type: 
  Country: None (occurrence: None)
  Receive Date: 20050525
  Receipt Date: 20050518
  Transmission Date: 20051028
  Serious: Yes (Hospitalization)
  Sender: FDA-Public Use
  Company Number: 200514318US

PATIENT
  Sex: Female

DRUGS (2)
  1. NASACORT AQ [Suspect]
     Dosage: DOSE: UNK
  2. DILANTIN [Concomitant]
     Dosage: DOSE: UNK

REACTIONS (1)
  - GRAND MAL CONVULSION [None]
